FAERS Safety Report 8058934-5 (Version None)
Quarter: 2012Q1

REPORT INFORMATION
  Report Type: 
  Country: None (occurrence: None)
  Receive Date: 20120120
  Receipt Date: 20120112
  Transmission Date: 20120608
  Serious: Yes (Hospitalization)
  Sender: FDA-Public Use
  Company Number: DE-ASTELLAS-2012US000534

PATIENT
  Sex: Female

DRUGS (1)
  1. TACROLIMUS [Suspect]
     Indication: DERMATITIS ATOPIC
     Dosage: 0.1 %, UNKNOWN/D
     Route: 061
     Dates: start: 20050310

REACTIONS (6)
  - MYALGIA [None]
  - DIARRHOEA [None]
  - PNEUMONIA [None]
  - NAUSEA [None]
  - OFF LABEL USE [None]
  - VOMITING [None]
